FAERS Safety Report 4339300-2 (Version None)
Quarter: 2004Q2

REPORT INFORMATION
  Report Type: 
  Country: None (occurrence: None)
  Receive Date: 20040414
  Receipt Date: 20040414
  Transmission Date: 20050107
  Serious: Yes (Life-Threatening)
  Sender: FDA-Public Use
  Company Number: None

PATIENT
  Age: 58 Year
  Sex: Male
  Weight: 73.4827 kg

DRUGS (1)
  1. CYPHER STENT CORDIS [Suspect]
     Indication: CORONARY ARTERY DISEASE
     Dosage: ONCE INTRARTERIA
     Route: 013
     Dates: start: 20040323, end: 20040324

REACTIONS (3)
  - CHEST PAIN [None]
  - MYOCARDIAL INFARCTION [None]
  - STENT OCCLUSION [None]
